FAERS Safety Report 23146752 (Version 1)
Quarter: 2023Q4

REPORT INFORMATION
  Report Type: Report from Study
  Country: GB (occurrence: GB)
  Receive Date: 20231105
  Receipt Date: 20231105
  Transmission Date: 20240110
  Serious: Yes (Death)
  Sender: FDA-Public Use
  Company Number: GB-CELLTRION INC.-2023GB010171

PATIENT

DRUGS (21)
  1. BEVACIZUMAB [Suspect]
     Active Substance: BEVACIZUMAB
     Indication: Hepatocellular carcinoma
     Dosage: 1000 MILLIGRAM
     Route: 065
     Dates: start: 20220120
  2. ATEZOLIZUMAB [Suspect]
     Active Substance: ATEZOLIZUMAB
     Indication: Hepatocellular carcinoma
     Dosage: 1200 MILLIGRAM
     Route: 042
     Dates: start: 20220120
  3. ASPIRIN [Concomitant]
     Active Substance: ASPIRIN
     Dosage: UNK, QD
     Dates: start: 20211215
  4. ATORVASTATIN [Concomitant]
     Active Substance: ATORVASTATIN
     Dosage: 40 MILLIGRAM, EVERY 1 DAY
     Dates: start: 20211222
  5. CANDESARTAN [Concomitant]
     Active Substance: CANDESARTAN
     Dosage: 8 MILLIGRAM, EVERY 1 DAY (CUMULATIVE DOSE TO FIRST REACTION: 8.0 MG)
     Dates: start: 20220208, end: 20220321
  6. CANDESARTAN [Concomitant]
     Active Substance: CANDESARTAN
     Dosage: 16 MILLIGRAM, EVERY 1 DAY (CUMULATIVE DOSE TO FIRST REACTION: 672.0 MG)
     Dates: start: 20220322
  7. CANDESARTAN [Concomitant]
     Active Substance: CANDESARTAN
     Dosage: 24 MILLIGRAM, SINGLE 1 DAYS
     Dates: start: 20220510
  8. CANDESARTAN [Concomitant]
     Active Substance: CANDESARTAN
     Dosage: 16 MILLIGRAM, SINGLE 1 DAYS
     Dates: start: 20220726
  9. CLOBETASOL [Concomitant]
     Active Substance: CLOBETASOL
     Dosage: AS NECESARY/PRN
     Dates: start: 20220215
  10. OMEPRAZOLE [Concomitant]
     Active Substance: OMEPRAZOLE
     Indication: Prophylaxis
     Dosage: 15 MG, EVERY 1 DAY
     Dates: start: 20211215
  11. PREDNISOLONE [Concomitant]
     Active Substance: PREDNISOLONE
     Dosage: SINGLE 1 DAYS
     Dates: start: 20220416
  12. PREDNISOLONE [Concomitant]
     Active Substance: PREDNISOLONE
     Dosage: 15 MG SINGLE 1 DAYS
     Dates: start: 20220421
  13. PREDNISOLONE [Concomitant]
     Active Substance: PREDNISOLONE
     Dosage: 70 MG, SINGLE 1 DAYS
     Dates: start: 20220511
  14. PREDNISOLONE [Concomitant]
     Active Substance: PREDNISOLONE
     Dosage: SINGLE 1 DAYS
     Dates: start: 20220513
  15. PREDNISOLONE [Concomitant]
     Active Substance: PREDNISOLONE
     Dosage: 40 MG, SINGLE 1 DAYS
     Dates: start: 20220519
  16. PREDNISOLONE [Concomitant]
     Active Substance: PREDNISOLONE
     Dosage: 30 MG, SINGLE 1 DAYS
     Dates: start: 20220526
  17. PREDNISOLONE [Concomitant]
     Active Substance: PREDNISOLONE
     Dosage: 20 MG, SINGLE 1 DAYS
     Dates: start: 20220602
  18. PREDNISOLONE [Concomitant]
     Active Substance: PREDNISOLONE
     Dosage: 10 MG, SINGLE 1 DAYS
     Dates: start: 20220614
  19. CODEINE PHOSPHATE [Concomitant]
     Active Substance: CODEINE PHOSPHATE
     Dosage: 15 MG, PRN, SINGLE 1 AS REQUIRED
     Dates: start: 20220615
  20. CODEINE PHOSPHATE [Concomitant]
     Active Substance: CODEINE PHOSPHATE
     Dosage: 30 MG, PRN, SINGLE 1 AS REQUIRED
     Dates: start: 20220715
  21. ACETAMINOPHEN [Concomitant]
     Active Substance: ACETAMINOPHEN
     Dosage: 1 G, SINGLE 1 AS REQUIRED
     Dates: start: 20220614

REACTIONS (4)
  - Death [Fatal]
  - Hypertension [Recovered/Resolved]
  - Back pain [Not Recovered/Not Resolved]
  - Intentional product use issue [Unknown]

NARRATIVE: CASE EVENT DATE: 20220208
